FAERS Safety Report 14882971 (Version 1)
Quarter: 2018Q2

REPORT INFORMATION
  Report Type: Spontaneous
  Country: KR (occurrence: KR)
  Receive Date: 20180511
  Receipt Date: 20180511
  Transmission Date: 20180711
  Serious: Yes (Other)
  Sender: FDA-Public Use
  Company Number: KR-JUBILANT CADISTA PHARMACEUTICALS-2018JUB00180

PATIENT
  Age: 37 Year
  Sex: Female

DRUGS (1)
  1. METHYLPREDNISOLONE. [Suspect]
     Active Substance: METHYLPREDNISOLONE
     Indication: SPINAL CORD OEDEMA
     Dosage: 1 G, 1X/DAY
     Route: 065

REACTIONS (1)
  - Drug-induced liver injury [Recovered/Resolved]
